FAERS Safety Report 14246053 (Version 7)
Quarter: 2023Q4

REPORT INFORMATION
  Report Type: Other
  Country: DE (occurrence: DE)
  Receive Date: 20171204
  Receipt Date: 20231025
  Transmission Date: 20240110
  Serious: Yes (Hospitalization, Other)
  Sender: FDA-Public Use
  Company Number: DE-ROCHE-1528839

PATIENT
  Age: 81 Year
  Sex: Female
  Weight: 59 kg

DRUGS (7)
  1. BEVACIZUMAB [Suspect]
     Active Substance: BEVACIZUMAB
     Indication: Colorectal cancer metastatic
     Dosage: LAST DOSE PRIOR TO SAE: 04/DEC/2013 (ILEUS)
     Route: 042
     Dates: start: 20131011, end: 20131011
  2. BEVACIZUMAB [Suspect]
     Active Substance: BEVACIZUMAB
     Dosage: LAST DOSE PRIOR TO SAE: 04/DEC/2013 (DIZZINESS)
     Route: 042
     Dates: start: 20131204, end: 20131204
  3. BEVACIZUMAB [Suspect]
     Active Substance: BEVACIZUMAB
     Dosage: MOST RECENT DOSE PRIOR TO AE 09/JAN/2014
     Route: 042
     Dates: start: 20140109
  4. FLUOROURACIL [Suspect]
     Active Substance: FLUOROURACIL
     Indication: Colorectal cancer metastatic
     Dosage: MOST RECENT DOSE PRIOR TO AE 09/JAN/2014
     Route: 042
     Dates: start: 20140109
  5. LEUCOVORIN [Suspect]
     Active Substance: LEUCOVORIN\LEUCOVORIN CALCIUM
     Indication: Colorectal cancer metastatic
     Dosage: MOST RECENT DOSE PRIOR TO AE 09/JAN/2014
     Route: 042
     Dates: start: 20140109
  6. CAPECITABINE [Suspect]
     Active Substance: CAPECITABINE
     Indication: Colorectal cancer metastatic
     Dosage: MOST RECENT DOSE PRIOR TO AE 09/DEC/2013
     Route: 048
     Dates: start: 20131011
  7. ZOFRAN [Concomitant]
     Active Substance: ONDANSETRON HYDROCHLORIDE
     Indication: Nausea
     Route: 042
     Dates: start: 20140109, end: 20140109

REACTIONS (4)
  - Ileus [Recovered/Resolved]
  - Dizziness [Not Recovered/Not Resolved]
  - Gastrointestinal disorder [Recovered/Resolved]
  - Intestinal obstruction [Recovered/Resolved]

NARRATIVE: CASE EVENT DATE: 20131209
